FAERS Safety Report 20784099 (Version 1)
Quarter: 2022Q2

REPORT INFORMATION
  Report Type: Spontaneous
  Country: FR (occurrence: FR)
  Receive Date: 20220504
  Receipt Date: 20220504
  Transmission Date: 20220720
  Serious: Yes (Death)
  Sender: FDA-Public Use
  Company Number: None

PATIENT
  Age: 35 Year
  Sex: Male

DRUGS (4)
  1. PAROXETINE [Suspect]
     Active Substance: PAROXETINE
     Dosage: UNKNOWN , PAROXETINE (CHLORHYDRATE DE) ANHYDRE
     Route: 065
     Dates: end: 202109
  2. HEROIN [Suspect]
     Active Substance: DIAMORPHINE
     Dosage: UNKNOWN
     Route: 065
     Dates: end: 202109
  3. COCAINE [Suspect]
     Active Substance: COCAINE
     Dosage: UNKNOWN
     Route: 065
     Dates: end: 202109
  4. ALCOHOL [Suspect]
     Active Substance: ALCOHOL
     Dosage: UNKNOWN , ALCOOL
     Route: 065
     Dates: end: 202109

REACTIONS (1)
  - Drug abuse [Fatal]
